FAERS Safety Report 10095493 (Version 2)
Quarter: 2014Q2

REPORT INFORMATION
  Report Type: Spontaneous
  Country: US (occurrence: US)
  Receive Date: 20140422
  Receipt Date: 20140522
  Transmission Date: 20141212
  Serious: Yes (Life-Threatening, Congenital Anomaly, Other)
  Sender: FDA-Public Use
  Company Number: US-PFIZER INC-2014109336

PATIENT
  Sex: Male

DRUGS (5)
  1. ZOLOFT [Suspect]
     Dosage: UNK
     Route: 064
     Dates: start: 20060620, end: 20091017
  2. PRENATAL VITAMINS [Concomitant]
     Dosage: UNK
     Route: 064
  3. MULTIVITAMINS [Concomitant]
     Dosage: UNK
     Route: 064
  4. IRON SUPPLEMENTS [Concomitant]
     Dosage: UNK
     Route: 064
  5. CALCIUM SUPPLEMENTS [Concomitant]
     Dosage: UNK
     Route: 064

REACTIONS (4)
  - Maternal exposure during pregnancy [Unknown]
  - Congenital anomaly [Unknown]
  - Hypospadias [Unknown]
  - Premature baby [Unknown]
